FAERS Safety Report 19701683 (Version 3)
Quarter: 2021Q4

REPORT INFORMATION
  Report Type: Other
  Country: US (occurrence: None)
  Receive Date: 20210813
  Receipt Date: 20211231
  Transmission Date: 20220303
  Serious: Yes (Other)
  Sender: FDA-Public Use
  Company Number: US-ROCHE-2883028

PATIENT
  Sex: Female
  Weight: 131.66 kg

DRUGS (6)
  1. OCREVUS [Suspect]
     Active Substance: OCRELIZUMAB
     Indication: Relapsing multiple sclerosis
     Dosage: DATE OF TREATMENT 2021-02-25, 2020-07-21, 2020-01-23, 2019-07-23, 2019-01-08,
     Route: 042
     Dates: start: 20180108
  2. OCREVUS [Suspect]
     Active Substance: OCRELIZUMAB
     Dosage: GIVEN EVERY 4 HOURS
     Route: 042
     Dates: start: 201901, end: 20210210
  3. OCREVUS [Suspect]
     Active Substance: OCRELIZUMAB
     Route: 042
  4. SOLU-MEDROL [Suspect]
     Active Substance: METHYLPREDNISOLONE SODIUM SUCCINATE
     Indication: Product used for unknown indication
     Route: 065
  5. TECFIDERA [Concomitant]
     Active Substance: DIMETHYL FUMARATE
  6. HEPATITIS B VIRUS VACCINE [Concomitant]
     Active Substance: HEPATITIS B VIRUS VACCINE

REACTIONS (17)
  - Cyst [Recovered/Resolved]
  - Chronic hepatitis B [Not Recovered/Not Resolved]
  - Thyroid cancer [Recovered/Resolved]
  - Thyroid operation [Recovered/Resolved]
  - Peripheral swelling [Unknown]
  - Hypotension [Unknown]
  - Vitamin A decreased [Unknown]
  - Fall [Unknown]
  - Arthritis [Not Recovered/Not Resolved]
  - Swelling [Not Recovered/Not Resolved]
  - Weight increased [Unknown]
  - Urine copper increased [Unknown]
  - Hepatic enzyme increased [Unknown]
  - Hepatitis [Unknown]
  - Hepatic fibrosis [Unknown]
  - Hyperhidrosis [Unknown]
  - Blood copper increased [Unknown]

NARRATIVE: CASE EVENT DATE: 20200101
